FAERS Safety Report 17583618 (Version 2)
Quarter: 2023Q4

REPORT INFORMATION
  Report Type: Report from Study
  Country: CA (occurrence: None)
  Receive Date: 20200326
  Receipt Date: 20231205
  Transmission Date: 20240110
  Serious: Yes (Other)
  Sender: FDA-Public Use
  Company Number: CA-ORION CORPORATION ORION PHARMA-TREX2020-1505

PATIENT
  Age: 49 Year
  Sex: Female

DRUGS (17)
  1. METHOTREXATE [Suspect]
     Active Substance: METHOTREXATE
     Indication: Arthritis
  2. ENTYVIO [Suspect]
     Active Substance: VEDOLIZUMAB
     Indication: Crohn^s disease
  3. ENTYVIO [Suspect]
     Active Substance: VEDOLIZUMAB
  4. ENTYVIO [Suspect]
     Active Substance: VEDOLIZUMAB
  5. ENTYVIO [Suspect]
     Active Substance: VEDOLIZUMAB
  6. ENTYVIO [Suspect]
     Active Substance: VEDOLIZUMAB
  7. ENTYVIO [Suspect]
     Active Substance: VEDOLIZUMAB
  8. CITALOPRAM [Concomitant]
     Active Substance: CITALOPRAM HYDROBROMIDE
  9. CLONAZEPAM [Concomitant]
     Active Substance: CLONAZEPAM
  10. HYDROXYZINE [Concomitant]
     Active Substance: HYDROXYZINE HYDROCHLORIDE
  11. IMODIUM [Concomitant]
     Active Substance: LOPERAMIDE HYDROCHLORIDE
  12. QUETIAPINE FUMARATE [Concomitant]
     Active Substance: QUETIAPINE FUMARATE
  13. SIMVASTATIN [Concomitant]
     Active Substance: SIMVASTATIN
  14. SYNTHROID [Concomitant]
     Active Substance: LEVOTHYROXINE SODIUM
  15. TRAZODONE [Concomitant]
     Active Substance: TRAZODONE HYDROCHLORIDE
  16. WELLBUTRIN [Concomitant]
     Active Substance: BUPROPION HYDROCHLORIDE
  17. METFORMIN [Concomitant]
     Active Substance: METFORMIN HYDROCHLORIDE

REACTIONS (9)
  - Anal abscess [Not Recovered/Not Resolved]
  - Arthralgia [Not Recovered/Not Resolved]
  - Arthritis [Not Recovered/Not Resolved]
  - Drug hypersensitivity [Not Recovered/Not Resolved]
  - Fistula [Not Recovered/Not Resolved]
  - Myalgia [Not Recovered/Not Resolved]
  - Oxygen saturation decreased [Not Recovered/Not Resolved]
  - Pruritus [Not Recovered/Not Resolved]
  - Anal fissure [Not Recovered/Not Resolved]
